FAERS Safety Report 24282032 (Version 1)
Quarter: 2024Q3

REPORT INFORMATION
  Report Type: Spontaneous
  Country: CN (occurrence: CN)
  Receive Date: 20240904
  Receipt Date: 20240904
  Transmission Date: 20241017
  Serious: Yes (Other)
  Sender: PFIZER
  Company Number: CN-PFIZER INC-PV202400114228

PATIENT
  Age: 53 Year
  Sex: Female
  Weight: 62 kg

DRUGS (2)
  1. EPIRUBICIN [Suspect]
     Active Substance: EPIRUBICIN
     Indication: Breast cancer
     Dosage: 160.000 MG, 1X/DAY
     Route: 041
     Dates: start: 20240807, end: 20240807
  2. CYCLOPHOSPHAMIDE [Concomitant]
     Active Substance: CYCLOPHOSPHAMIDE
     Indication: Breast cancer
     Dosage: 0.950 G, 1X/DAY
     Route: 042
     Dates: start: 20240807, end: 20240807

REACTIONS (5)
  - Myelosuppression [Recovered/Resolved]
  - Lymphocyte percentage increased [Unknown]
  - Basophil percentage increased [Unknown]
  - Immature granulocyte percentage increased [Unknown]
  - Lymphocyte percentage decreased [Unknown]

NARRATIVE: CASE EVENT DATE: 20240814
